FAERS Safety Report 8797495 (Version 2)
Quarter: 2015Q2

REPORT INFORMATION
  Report Type: Report from Study
  Country: US (occurrence: US)
  Receive Date: 20120919
  Receipt Date: 20150626
  Transmission Date: 20150821
  Serious: Yes (Death)
  Sender: FDA-Public Use
  Company Number: US-ROCHE-1127016

PATIENT
  Sex: Female
  Weight: 62 kg

DRUGS (11)
  1. AVASTIN [Suspect]
     Active Substance: BEVACIZUMAB
     Indication: OVARIAN CANCER
     Dosage: ALSO RECEIVED ON 16/OCT/2006, 13/NOV/2006, 27/NOV/2006, 11/DEC/2006, 15/JAN/2007, 29/JAN/2007, 12/FE
     Route: 042
     Dates: start: 20060918
  2. TOPOTECAN [Concomitant]
     Active Substance: TOPOTECAN\TOPOTECAN HYDROCHLORIDE
  3. AVASTIN [Suspect]
     Active Substance: BEVACIZUMAB
     Indication: METASTASES TO PERITONEUM
     Dosage: RECEIVED ON 30/OCT/2006
     Route: 042
  4. FENTANYL. [Concomitant]
     Active Substance: FENTANYL
     Route: 042
  5. TAXOL [Concomitant]
     Active Substance: PACLITAXEL
  6. AVASTIN [Suspect]
     Active Substance: BEVACIZUMAB
     Indication: MALIGNANT NEOPLASM OF UTERINE ADNEXA
     Dosage: RECEIVED ON 14/MAR/2008, 04/APR/2008
     Route: 042
  7. VERSED [Concomitant]
     Active Substance: MIDAZOLAM HYDROCHLORIDE
     Route: 065
  8. DOXIL [Concomitant]
     Active Substance: DOXORUBICIN HYDROCHLORIDE
  9. AVASTIN [Suspect]
     Active Substance: BEVACIZUMAB
     Indication: RETROPERITONEAL CANCER
     Dosage: RECEIVED ON 10/DEC/2007, 07/JAN/2008, 06/FEB/2008
     Route: 042
  10. GEMZAR [Concomitant]
     Active Substance: GEMCITABINE HYDROCHLORIDE
  11. CISPLATIN. [Concomitant]
     Active Substance: CISPLATIN

REACTIONS (3)
  - Off label use [Unknown]
  - Drug dose omission [Unknown]
  - Death [Fatal]
